FAERS Safety Report 25829732 (Version 1)
Quarter: 2025Q3

REPORT INFORMATION
  Report Type: Spontaneous
  Country: US (occurrence: US)
  Receive Date: 20250922
  Receipt Date: 20250922
  Transmission Date: 20251020
  Serious: No
  Sender: APOTEX
  Company Number: US-APOTEX-2025AP030226

PATIENT
  Age: 49 Year
  Sex: Female

DRUGS (5)
  1. MODAFINIL [Suspect]
     Active Substance: MODAFINIL
     Indication: Product used for unknown indication
     Dosage: UNK, BID (200 MG IN THE MORNING, 100 MG IN THE AFTERNOON)
     Route: 065
     Dates: end: 20250819
  2. MODAFINIL [Suspect]
     Active Substance: MODAFINIL
     Dosage: 100 MILLIGRAM, QD IN THE AFTERNOON
     Route: 065
     Dates: start: 20250820, end: 20250820
  3. MODAFINIL [Suspect]
     Active Substance: MODAFINIL
     Dosage: UNK, BID (200 MG IN THE MORNING, 100 MG IN THE AFTERNOON)
     Route: 065
     Dates: start: 20250821
  4. LUMRYZ [Suspect]
     Active Substance: SODIUM OXYBATE
     Indication: Narcolepsy
     Dosage: 4.5 GRAM, Q.H.S.
     Route: 048
     Dates: start: 20250819
  5. LUMRYZ [Suspect]
     Active Substance: SODIUM OXYBATE
     Indication: Cataplexy

REACTIONS (4)
  - Fatigue [Not Recovered/Not Resolved]
  - Acne [Recovered/Resolved]
  - Somnolence [Not Recovered/Not Resolved]
  - Drug ineffective [Not Recovered/Not Resolved]

NARRATIVE: CASE EVENT DATE: 20250801
